FAERS Safety Report 24996677 (Version 2)
Quarter: 2025Q1

REPORT INFORMATION
  Report Type: Spontaneous
  Country: AR (occurrence: AR)
  Receive Date: 20250221
  Receipt Date: 20250321
  Transmission Date: 20250409
  Serious: No
  Sender: PFIZER
  Company Number: AR-PFIZER INC-202500039061

PATIENT
  Age: 7 Year
  Sex: Male

DRUGS (1)
  1. GENOTROPIN [Suspect]
     Active Substance: SOMATROPIN
     Indication: Growth hormone deficiency
     Dates: start: 20240216

REACTIONS (2)
  - Device mechanical issue [Unknown]
  - Device use error [Unknown]

NARRATIVE: CASE EVENT DATE: 20250216
